FAERS Safety Report 4988046-6 (Version None)
Quarter: 2006Q2

REPORT INFORMATION
  Report Type: 
  Country: None (occurrence: None)
  Receive Date: 20060426
  Receipt Date: 20060414
  Transmission Date: 20061013
  Serious: Yes (Hospitalization)
  Sender: FDA-Public Use
  Company Number: 2006052016

PATIENT
  Age: 81 Year
  Sex: Female

DRUGS (3)
  1. AZITHROMYCIN [Suspect]
     Indication: INFLUENZA
  2. SPIRONOLACTONE [Concomitant]
  3. CHLORTALIDONE (CHORTALIDONE0 [Concomitant]

REACTIONS (31)
  - ALANINE AMINOTRANSFERASE INCREASED [None]
  - ANOREXIA [None]
  - APHAGIA [None]
  - BLOOD ALKALINE PHOSPHATASE INCREASED [None]
  - BLOOD BILIRUBIN INCREASED [None]
  - BLOOD CREATINE PHOSPHOKINASE INCREASED [None]
  - CATATONIA [None]
  - DELUSION [None]
  - DIET REFUSAL [None]
  - FEELING OF DESPAIR [None]
  - GRIMACING [None]
  - IMMOBILE [None]
  - INSOMNIA [None]
  - LYMPHOCYTE PERCENTAGE DECREASED [None]
  - MAJOR DEPRESSION [None]
  - MORBID THOUGHTS [None]
  - MUSCLE RIGIDITY [None]
  - MUTISM [None]
  - NEGATIVISM [None]
  - NEUTROPHIL PERCENTAGE INCREASED [None]
  - POSTURE ABNORMAL [None]
  - POSTURING [None]
  - PSYCHOMOTOR RETARDATION [None]
  - PSYCHOTIC DISORDER [None]
  - REFUSAL OF TREATMENT BY PATIENT [None]
  - SOCIAL AVOIDANT BEHAVIOUR [None]
  - STARING [None]
  - STUPOR [None]
  - SUICIDAL IDEATION [None]
  - WAXY FLEXIBILITY [None]
  - WHITE BLOOD CELL COUNT INCREASED [None]
